FAERS Safety Report 18250753 (Version 1)
Quarter: 2020Q3

REPORT INFORMATION
  Report Type: Spontaneous
  Country: CZ (occurrence: CZ)
  Receive Date: 20200910
  Receipt Date: 20200910
  Transmission Date: 20201103
  Serious: Yes (Hospitalization, Other)
  Sender: FDA-Public Use
  Company Number: CZ-SUN PHARMACEUTICAL INDUSTRIES LTD-2020R1-259903

PATIENT
  Age: 91 Year
  Sex: Female

DRUGS (3)
  1. FUROSEMIDE. [Suspect]
     Active Substance: FUROSEMIDE
     Indication: PRODUCT USED FOR UNKNOWN INDICATION
     Dosage: HIGH DOSES
     Route: 065
  2. DABIGATRAN ETEXILATE [Suspect]
     Active Substance: DABIGATRAN ETEXILATE
     Dosage: 75 MILLIGRAM, UNK
     Route: 065
  3. DABIGATRAN ETEXILATE [Suspect]
     Active Substance: DABIGATRAN ETEXILATE
     Indication: PULMONARY EMBOLISM
     Dosage: 110 MILLIGRAM, UNK
     Route: 065

REACTIONS (4)
  - Haemorrhoids [Unknown]
  - Drug level increased [Recovering/Resolving]
  - Renal failure [Unknown]
  - Intestinal haemorrhage [Unknown]
